FAERS Safety Report 18154440 (Version 2)
Quarter: 2020Q3

REPORT INFORMATION
  Report Type: Report from Study
  Country: GB (occurrence: GB)
  Receive Date: 20200817
  Receipt Date: 20200828
  Transmission Date: 20201103
  Serious: Yes (Other)
  Sender: FDA-Public Use
  Company Number: GB-AUROBINDO-AUR-APL-2020-038928

PATIENT
  Age: 6 Year
  Sex: Female

DRUGS (8)
  1. TRUVADA [Suspect]
     Active Substance: EMTRICITABINE\TENOFOVIR DISOPROXIL FUMARATE
     Indication: PERINATAL HIV INFECTION
     Dosage: UNK,PEG
     Route: 065
  2. LOPINAVIR [Suspect]
     Active Substance: LOPINAVIR
     Indication: PERINATAL HIV INFECTION
     Dosage: UNK,PEG
     Route: 065
  3. ABACAVIR. [Suspect]
     Active Substance: ABACAVIR
     Indication: PERINATAL HIV INFECTION
     Dosage: UNK,PEG
     Route: 065
  4. LAMIVUDINE. [Suspect]
     Active Substance: LAMIVUDINE
     Indication: HIV INFECTION
     Dosage: UNK
     Route: 065
  5. RITONAVIR. [Suspect]
     Active Substance: RITONAVIR
     Indication: PERINATAL HIV INFECTION
     Dosage: UNK,PEG
     Route: 065
  6. DIDANOSIN [Suspect]
     Active Substance: DIDANOSINE
     Indication: PERINATAL HIV INFECTION
     Dosage: UNK,PEG
     Route: 065
  7. ZALCITABINE [Suspect]
     Active Substance: ZALCITABINE
     Indication: HIV INFECTION
     Dosage: UNK
     Route: 065
  8. ZIDOVUDINE. [Suspect]
     Active Substance: ZIDOVUDINE
     Indication: HIV INFECTION
     Dosage: UNK
     Route: 065

REACTIONS (5)
  - Treatment noncompliance [Unknown]
  - Incorrect route of product administration [Unknown]
  - Virologic failure [Unknown]
  - Blood HIV RNA increased [Recovered/Resolved]
  - CD4 lymphocytes decreased [Recovered/Resolved]
